FAERS Safety Report 12322552 (Version 1)
Quarter: 2016Q2

REPORT INFORMATION
  Report Type: Spontaneous
  Country: US (occurrence: US)
  Receive Date: 20160502
  Receipt Date: 20160502
  Transmission Date: 20160815
  Serious: No
  Sender: FDA-Public Use
  Company Number: US-TORRENT-00001116

PATIENT
  Age: 63 Year
  Sex: Female
  Weight: 43 kg

DRUGS (7)
  1. PREMARIN [Concomitant]
     Active Substance: ESTROGENS, CONJUGATED
     Indication: HORMONE THERAPY
     Dosage: 1.25MG TABLET BY MOUTH 5 TABLETS DAILY
     Route: 048
     Dates: start: 20160115
  2. FIORICET [Concomitant]
     Active Substance: ACETAMINOPHEN\BUTALBITAL\CAFFEINE
     Indication: MIGRAINE
     Dosage: DOSE AS NEEDED.
  3. PROVERA [Concomitant]
     Active Substance: MEDROXYPROGESTERONE ACETATE
     Indication: HORMONE REPLACEMENT THERAPY
     Dosage: 10MG TABLET BY MOUTH DAY 16-25, 5 DAYS OFF
     Route: 048
  4. ESTRADIOL. [Concomitant]
     Active Substance: ESTRADIOL
  5. XANAX [Concomitant]
     Active Substance: ALPRAZOLAM
     Indication: BIPOLAR I DISORDER
     Dosage: 2MG TABLET BY MOUTH 3-4 TIMES A DAY
     Route: 048
  6. LASIX [Concomitant]
     Active Substance: FUROSEMIDE
     Indication: FLUID RETENTION
     Dosage: 20MG TABLET BY MOUTH AS NEEDED
     Route: 048
  7. OLANZAPINE TABLET [Suspect]
     Active Substance: OLANZAPINE
     Indication: DECREASED APPETITE
     Dosage: ONE TABLET BY MOUTH AT BEDTIME
     Route: 048

REACTIONS (3)
  - Somnolence [Unknown]
  - Sedation [Unknown]
  - Off label use [Unknown]
